FAERS Safety Report 24256392 (Version 1)
Quarter: 2024Q3

REPORT INFORMATION
  Report Type: Spontaneous
  Country: US (occurrence: US)
  Receive Date: 20240828
  Receipt Date: 20240828
  Transmission Date: 20241017
  Serious: Yes (Hospitalization)
  Sender: NOVO NORDISK
  Company Number: US-NOVOPROD-1272266

PATIENT
  Age: 66 Year
  Sex: Female

DRUGS (2)
  1. RIVFLOZA [Suspect]
     Active Substance: NEDOSIRAN SODIUM
     Indication: Primary hyperoxaluria
     Dosage: 150 MG, QM
     Route: 058
     Dates: start: 20240717
  2. AMLODIPINE [Concomitant]
     Active Substance: AMLODIPINE BESYLATE
     Indication: Product used for unknown indication

REACTIONS (2)
  - Pulmonary oedema [Unknown]
  - Rash [Recovered/Resolved]

NARRATIVE: CASE EVENT DATE: 20240718
